FAERS Safety Report 6120309-3 (Version None)
Quarter: 2009Q1

REPORT INFORMATION
  Report Type: 
  Country: None (occurrence: None)
  Receive Date: 20090312
  Receipt Date: 20090210
  Transmission Date: 20090719
  Serious: No
  Sender: FDA-Public Use
  Company Number: 2008-1801

PATIENT
  Age: 66 Year
  Sex: Female

DRUGS (5)
  1. SOMATULINE AUTOGEL 60MG (LANREOTIDE ACETATE) (LANREOTIDE ACETATE) [Suspect]
     Indication: CARCINOID TUMOUR
     Dosage: 60 MG SUBCUTANEOUS
     Route: 058
     Dates: end: 20081201
  2. WARFARIN SODIUM [Suspect]
  3. LIPITOR [Concomitant]
  4. NEXIUM [Concomitant]
  5. METOPROLOL [Concomitant]

REACTIONS (2)
  - DRUG INTERACTION [None]
  - INTERNATIONAL NORMALISED RATIO INCREASED [None]
